FAERS Safety Report 10074325 (Version 1)
Quarter: 2014Q2

REPORT INFORMATION
  Report Type: Spontaneous
  Country: US (occurrence: US)
  Receive Date: 20140411
  Receipt Date: 20140411
  Transmission Date: 20141212
  Serious: No
  Sender: FDA-Public Use
  Company Number: US-SANOFI-AVENTIS-2013SA049001

PATIENT
  Age: 61 Year
  Sex: Female

DRUGS (2)
  1. ALLEGRA-D, 12 HR [Suspect]
     Indication: UNEVALUABLE EVENT
     Dosage: DOSE 60/120 MG
     Route: 048
     Dates: start: 20130508, end: 20130510
  2. ANTI-PARKINSON AGENTS [Concomitant]

REACTIONS (3)
  - Feeling abnormal [Not Recovered/Not Resolved]
  - Tremor [Not Recovered/Not Resolved]
  - Dizziness [Recovered/Resolved]
